FAERS Safety Report 6287172-1 (Version None)
Quarter: 2009Q3

REPORT INFORMATION
  Report Type: 
  Country: None (occurrence: None)
  Receive Date: 20090728
  Receipt Date: 20090716
  Transmission Date: 20100115
  Serious: Yes (Life-Threatening)
  Sender: FDA-Public Use
  Company Number: FR-GENENTECH-286175

PATIENT
  Sex: Male

DRUGS (3)
  1. RITUXIMAB [Suspect]
     Indication: MANTLE CELL LYMPHOMA
     Dosage: 640 MG, UNK
     Route: 042
     Dates: start: 20090105, end: 20090309
  2. FLUDARABINE PHOSPHATE [Suspect]
     Indication: MANTLE CELL LYMPHOMA
     Dosage: 51 MG, UNK
     Route: 042
     Dates: start: 20090105, end: 20090309
  3. ENDOXAN [Suspect]
     Indication: MANTLE CELL LYMPHOMA
     Dosage: 478 MG, UNK
     Route: 042
     Dates: start: 20090105, end: 20090309

REACTIONS (2)
  - ATRIAL FIBRILLATION [None]
  - CORONARY ARTERY STENOSIS [None]
